FAERS Safety Report 24193212 (Version 1)
Quarter: 2024Q3

REPORT INFORMATION
  Report Type: Spontaneous
  Country: ZA (occurrence: ZA)
  Receive Date: 20240809
  Receipt Date: 20240809
  Transmission Date: 20241016
  Serious: Yes (Hospitalization)
  Sender: MACLEODS
  Company Number: ZA-MACLEODS PHARMA-MAC2024048593

PATIENT

DRUGS (16)
  1. HYDROCHLOROTHIAZIDE\VALSARTAN [Suspect]
     Active Substance: HYDROCHLOROTHIAZIDE\VALSARTAN
     Indication: Hypertension
     Route: 048
  2. AMLODIPINE BESYLATE [Suspect]
     Active Substance: AMLODIPINE BESYLATE
     Indication: Hypertension
     Route: 048
  3. ENALAPRIL [Suspect]
     Active Substance: ENALAPRIL
     Indication: Hypertension
     Route: 048
  4. COLCHICINE [Suspect]
     Active Substance: COLCHICINE
     Indication: Product used for unknown indication
     Route: 048
  5. ALLOPURINOL [Suspect]
     Active Substance: ALLOPURINOL
     Indication: Prophylaxis
     Route: 048
  6. AMMONIUM CHLORIDE\DEXTROMETHORPHAN HYDROBROMIDE\PANTHENOL [Suspect]
     Active Substance: AMMONIUM CHLORIDE\DEXTROMETHORPHAN HYDROBROMIDE\PANTHENOL
     Indication: Product used for unknown indication
     Dosage: TWO MEDICINE MEASURE
     Route: 048
  7. ACETAMINOPHEN\ASCORBIC ACID\PHENYLEPHRINE [Suspect]
     Active Substance: ACETAMINOPHEN\ASCORBIC ACID\PHENYLEPHRINE
     Indication: Product used for unknown indication
     Dosage: AT ONCE
     Route: 048
  8. ACETAMINOPHEN\ASCORBIC ACID\PHENYLEPHRINE [Suspect]
     Active Substance: ACETAMINOPHEN\ASCORBIC ACID\PHENYLEPHRINE
     Dosage: THREE TIMES A DAY
     Route: 048
  9. ACETAMINOPHEN\CHLORPHENIRAMINE\CODEINE\PSEUDOEPHEDRINE [Suspect]
     Active Substance: ACETAMINOPHEN\CHLORPHENIRAMINE\CODEINE\PSEUDOEPHEDRINE
     Indication: Product used for unknown indication
     Dosage: 1-2 TABLETS
     Route: 048
  10. ACETYLCYSTEINE [Suspect]
     Active Substance: ACETYLCYSTEINE
     Indication: Product used for unknown indication
     Route: 048
  11. CHLORPHENIRAMINE MALEATE [Suspect]
     Active Substance: CHLORPHENIRAMINE MALEATE
     Indication: Hypersensitivity
     Dosage: AS DIRECTED
     Route: 048
  12. CLOBETASOL [Suspect]
     Active Substance: CLOBETASOL
     Indication: Product used for unknown indication
     Dosage: APPLY TO THE AFFECTED AREA/S
     Route: 061
  13. CLOTRIMAZOLE [Suspect]
     Active Substance: CLOTRIMAZOLE
     Indication: Product used for unknown indication
     Dosage: APPLY TO THE AFFECTED AREA/S
     Route: 061
  14. MINERAL OIL EMULSION\PETROLATUM [Suspect]
     Active Substance: MINERAL OIL EMULSION\PETROLATUM
     Indication: Product used for unknown indication
     Dosage: APPLY TO THE AFFECTED AREA/S
     Route: 061
  15. PREDNISONE [Suspect]
     Active Substance: PREDNISONE
     Indication: Product used for unknown indication
     Route: 048
  16. CHLORAMPHENICOL [Suspect]
     Active Substance: CHLORAMPHENICOL
     Indication: Product used for unknown indication
     Dosage: APPLY TO AFFECTED PARTS
     Route: 061

REACTIONS (1)
  - Sepsis [Unknown]
